FAERS Safety Report 14283209 (Version 2)
Quarter: 2017Q4

REPORT INFORMATION
  Report Type: Spontaneous
  Country: US (occurrence: US)
  Receive Date: 20171213
  Receipt Date: 20171228
  Transmission Date: 20180321
  Serious: Yes (Other)
  Sender: FDA-Public Use
  Company Number: US-GLAXOSMITHKLINE-US2017GSK191495

PATIENT
  Age: 34 Year
  Sex: Male
  Weight: 83.45 kg

DRUGS (4)
  1. KEPPRA [Suspect]
     Active Substance: LEVETIRACETAM
     Indication: CONVULSION PROPHYLAXIS
     Dosage: 1000 DF, BID
  2. PHENOBARBITAL. [Suspect]
     Active Substance: PHENOBARBITAL
     Indication: CONVULSION PROPHYLAXIS
  3. TEGRETOL [Suspect]
     Active Substance: CARBAMAZEPINE
     Indication: CONVULSION PROPHYLAXIS
  4. LAMOTRIGINE. [Suspect]
     Active Substance: LAMOTRIGINE
     Indication: EPILEPSY
     Dosage: 50 MG, BID
     Route: 048
     Dates: start: 201506, end: 20150710

REACTIONS (10)
  - Drug hypersensitivity [Recovered/Resolved]
  - Affect lability [Unknown]
  - Anxiety [Unknown]
  - Headache [Recovered/Resolved]
  - Drug ineffective [Unknown]
  - Depression [Unknown]
  - Intracranial pressure increased [Recovered/Resolved]
  - Meningitis aseptic [Unknown]
  - Meningitis [Unknown]
  - Abnormal behaviour [Unknown]

NARRATIVE: CASE EVENT DATE: 201506
